FAERS Safety Report 9340130 (Version 3)
Quarter: 2014Q3

REPORT INFORMATION
  Report Type: Spontaneous
  Country: US (occurrence: US)
  Receive Date: 20130610
  Receipt Date: 20140812
  Transmission Date: 20150326
  Serious: Yes (Death, Other)
  Sender: FDA-Public Use
  Company Number: US-ASTELLAS-2013US004891

PATIENT
  Age: 80 Year
  Sex: Male

DRUGS (4)
  1. XTANDI [Suspect]
     Active Substance: ENZALUTAMIDE
     Indication: PROSTATE CANCER
     Route: 048
     Dates: start: 20130321, end: 20130421
  2. LUPRON [Concomitant]
     Active Substance: LEUPROLIDE ACETATE
     Indication: PROSTATE CANCER
     Dosage: 22.5 MG, ONCE EVERY 12 WEEKS
     Route: 030
     Dates: start: 20110921
  3. XTANDI [Suspect]
     Active Substance: ENZALUTAMIDE
     Route: 048
     Dates: start: 20130427, end: 20140516
  4. XGEVA [Concomitant]
     Active Substance: DENOSUMAB
     Indication: PROSTATE CANCER
     Dosage: 120 MG, ONCE EVERY FOUR WEEKS
     Route: 058
     Dates: start: 201103

REACTIONS (3)
  - Musculoskeletal stiffness [Recovered/Resolved]
  - Malignant neoplasm progression [Fatal]
  - Myalgia [Recovered/Resolved]

NARRATIVE: CASE EVENT DATE: 20130421
